FAERS Safety Report 4299801-2 (Version None)
Quarter: 2004Q1

REPORT INFORMATION
  Report Type: 
  Country: None (occurrence: None)
  Receive Date: 20040219
  Receipt Date: 20030605
  Transmission Date: 20041129
  Serious: Yes (Other)
  Sender: FDA-Public Use
  Company Number: WAES 0306AUT00007

PATIENT
  Sex: Female

DRUGS (6)
  1. [COMPOSITION UNSPECIFIED] [Concomitant]
     Indication: HYPERTENSION
  2. FOSAMAX [Suspect]
     Indication: OSTEOPOROSIS
     Route: 048
     Dates: start: 20030101
  3. FOSAMAX [Suspect]
     Route: 048
     Dates: end: 20030101
  4. CALCIUM (UNSPECIFIED) AND VITAMIN D (UNSPECIFIED) [Suspect]
     Indication: OSTEOPOROSIS
     Route: 048
     Dates: start: 20030101
  5. CARVEDILOL [Concomitant]
     Indication: HYPERTENSION
  6. TRAMADOL HYDROCHLORIDE [Concomitant]

REACTIONS (5)
  - ABDOMINAL DISCOMFORT [None]
  - EYE DISCHARGE [None]
  - EYE REDNESS [None]
  - KERATOCONJUNCTIVITIS SICCA [None]
  - MYOCARDIAL INFARCTION [None]
